FAERS Safety Report 19779208 (Version 2)
Quarter: 2022Q2

REPORT INFORMATION
  Report Type: Spontaneous
  Country: US (occurrence: None)
  Receive Date: 20210902
  Receipt Date: 20220405
  Transmission Date: 20220721
  Serious: Yes (Other)
  Sender: FDA-Public Use
  Company Number: 2021A700042

PATIENT
  Age: 44 Year
  Sex: Female
  Weight: 103.7 kg

DRUGS (29)
  1. PRILOSEC [Suspect]
     Active Substance: OMEPRAZOLE MAGNESIUM
     Indication: Gastrooesophageal reflux disease
     Route: 048
     Dates: start: 1999, end: 2017
  2. PRILOSEC [Suspect]
     Active Substance: OMEPRAZOLE MAGNESIUM
     Indication: Gastrooesophageal reflux disease
     Route: 048
     Dates: start: 1999, end: 2017
  3. PRILOSEC [Suspect]
     Active Substance: OMEPRAZOLE MAGNESIUM
     Indication: Gastrooesophageal reflux disease
     Dosage: GENERIC
     Route: 065
     Dates: start: 2015, end: 2018
  4. PREVACID [Suspect]
     Active Substance: LANSOPRAZOLE
     Indication: Gastrooesophageal reflux disease
     Route: 065
     Dates: start: 1999, end: 2017
  5. PREVACID [Suspect]
     Active Substance: LANSOPRAZOLE
     Indication: Gastrooesophageal reflux disease
     Route: 065
     Dates: start: 1999, end: 2017
  6. AMOXICILLIN [Concomitant]
     Active Substance: AMOXICILLIN
     Indication: Infection
     Route: 065
     Dates: start: 2017
  7. ATORVASTATIN [Concomitant]
     Active Substance: ATORVASTATIN
     Indication: Blood cholesterol abnormal
     Route: 065
     Dates: start: 2016, end: 2017
  8. DICLOFENAC [Concomitant]
     Active Substance: DICLOFENAC
     Indication: Pain
     Route: 065
     Dates: start: 2017
  9. DICLOFENAC [Concomitant]
     Active Substance: DICLOFENAC
     Indication: Swelling
     Route: 065
     Dates: start: 2017
  10. CIPROFLOXACIN [Concomitant]
     Active Substance: CIPROFLOXACIN
     Indication: Infection
     Route: 065
     Dates: start: 2016
  11. ACETAMINOPHEN [Concomitant]
     Active Substance: ACETAMINOPHEN
     Indication: Pain
     Route: 065
     Dates: start: 2016, end: 2017
  12. ASPIRIN [Concomitant]
     Active Substance: ASPIRIN
     Indication: Pain
     Route: 065
     Dates: start: 2016
  13. ALPRAZOLAM [Concomitant]
     Active Substance: ALPRAZOLAM
  14. TRAZODONE [Concomitant]
     Active Substance: TRAZODONE HYDROCHLORIDE
  15. RISPERIDONE [Concomitant]
     Active Substance: RISPERIDONE
  16. OXYCODONE [Concomitant]
     Active Substance: OXYCODONE
  17. SERTRALINE [Concomitant]
     Active Substance: SERTRALINE HYDROCHLORIDE
  18. LOVENOX [Concomitant]
     Active Substance: ENOXAPARIN SODIUM
  19. DIAZEPAM [Concomitant]
     Active Substance: DIAZEPAM
  20. FLUCONAZOLE [Concomitant]
     Active Substance: FLUCONAZOLE
  21. LORATADINE [Concomitant]
     Active Substance: LORATADINE
  22. PREMARIN [Concomitant]
     Active Substance: ESTROGENS, CONJUGATED
  23. METHYLPREDNISOLONE [Concomitant]
     Active Substance: METHYLPREDNISOLONE
  24. FLUTICASONE [Concomitant]
     Active Substance: FLUTICASONE
  25. MUPIROCIN [Concomitant]
     Active Substance: MUPIROCIN
  26. BACLOFEN [Concomitant]
     Active Substance: BACLOFEN
  27. ONDANSETRON [Concomitant]
     Active Substance: ONDANSETRON
  28. METHOCARBAMOL [Concomitant]
     Active Substance: METHOCARBAMOL
  29. PREDNISOLONE [Concomitant]
     Active Substance: PREDNISOLONE

REACTIONS (1)
  - Chronic kidney disease [Not Recovered/Not Resolved]

NARRATIVE: CASE EVENT DATE: 20160101
